FAERS Safety Report 10202186 (Version 1)
Quarter: 2014Q2

REPORT INFORMATION
  Report Type: Report from Study
  Country: FR (occurrence: FR)
  Receive Date: 20140528
  Receipt Date: 20140528
  Transmission Date: 20141212
  Serious: Yes (Other)
  Sender: FDA-Public Use
  Company Number: FR-GLAXOSMITHKLINE-B0997184A

PATIENT
  Age: 74 Year
  Sex: Female

DRUGS (2)
  1. DABRAFENIB [Suspect]
     Indication: MALIGNANT MELANOMA STAGE IV
     Dosage: 300MG UNKNOWN
     Route: 065
  2. TRAMETINIB [Suspect]
     Indication: MALIGNANT MELANOMA STAGE IV
     Dosage: 2MG UNKNOWN
     Route: 065

REACTIONS (1)
  - Cardiotoxicity [Unknown]
